FAERS Safety Report 5313440-3 (Version None)
Quarter: 2007Q2

REPORT INFORMATION
  Report Type: 
  Country: None (occurrence: None)
  Receive Date: 20070424
  Receipt Date: 20070413
  Transmission Date: 20071010
  Serious: Yes (Death, Other)
  Sender: FDA-Public Use
  Company Number: 2007JP001681

PATIENT
  Age: 54 Year
  Sex: Male

DRUGS (7)
  1. PROGRAF [Suspect]
     Indication: BONE MARROW TRANSPLANT
  2. METHOTREXATE [Concomitant]
  3. CORTICOSTEROIDS [Concomitant]
  4. ACYCLOVIR [Concomitant]
  5. GANCICLOVIR [Concomitant]
  6. FOSCARNET [Concomitant]
  7. IMMUNE GLOBULIN INTRAVENOUS (HUMAN) [Concomitant]

REACTIONS (15)
  - ALTERED STATE OF CONSCIOUSNESS [None]
  - COMPLICATIONS OF BONE MARROW TRANSPLANT [None]
  - DIABETIC HYPERGLYCAEMIC COMA [None]
  - ENCEPHALITIS HERPES [None]
  - ENCEPHALOPATHY [None]
  - HISTIOCYTOSIS HAEMATOPHAGIC [None]
  - HUMAN HERPESVIRUS 6 INFECTION [None]
  - HYPERKINESIA [None]
  - MEMORY IMPAIRMENT [None]
  - PNEUMONIA [None]
  - PSYCHIATRIC SYMPTOM [None]
  - PULMONARY HAEMORRHAGE [None]
  - RASH [None]
  - RESPIRATORY FAILURE [None]
  - SOMNOLENCE [None]
